FAERS Safety Report 10025340 (Version 1)
Quarter: 2014Q1

REPORT INFORMATION
  Report Type: Spontaneous
  Country: US (occurrence: None)
  Receive Date: 20140319
  Receipt Date: 20140319
  Transmission Date: 20141002
  Serious: Yes (Hospitalization)
  Sender: FDA-Public Use
  Company Number: None

PATIENT
  Age: 67 Year
  Sex: Male
  Weight: 88 kg

DRUGS (2)
  1. SIMVASTATIN [Suspect]
     Indication: HYPERLIPIDAEMIA
     Dosage: AT BEDTIME
     Route: 048
     Dates: start: 20030328, end: 20140201
  2. PAROXETINE [Suspect]
     Indication: DEPRESSION
     Dosage: AT BEDTIME
     Route: 048
     Dates: start: 20031217, end: 20140201

REACTIONS (3)
  - Renal failure acute [None]
  - Rhabdomyolysis [None]
  - Renal tubular necrosis [None]
